FAERS Safety Report 8003418-3 (Version None)
Quarter: 2011Q4

REPORT INFORMATION
  Report Type: 
  Country: None (occurrence: None)
  Receive Date: 20111222
  Receipt Date: 20111221
  Transmission Date: 20120403
  Serious: Yes (Hospitalization)
  Sender: FDA-Public Use
  Company Number: DE-CEPHALON-2011005037

PATIENT
  Sex: Male
  Weight: 84 kg

DRUGS (3)
  1. BENDAMUSTINE HCL [Suspect]
     Indication: LYMPHOMA
     Route: 042
     Dates: start: 20110525
  2. RITUXIMAB [Suspect]
     Dates: start: 20110524
  3. TEMSIROLIMUS [Suspect]
     Indication: LYMPHOMA
     Dates: start: 20110526

REACTIONS (2)
  - SOFT TISSUE INFECTION [None]
  - DEVICE RELATED INFECTION [None]
